FAERS Safety Report 6589560-2 (Version None)
Quarter: 2010Q1

REPORT INFORMATION
  Report Type: 
  Country: None (occurrence: None)
  Receive Date: 20100212
  Receipt Date: 20100128
  Transmission Date: 20100710
  Serious: Yes (Death)
  Sender: FDA-Public Use
  Company Number: DSJ-2010-00850

PATIENT
  Age: 87 Year
  Sex: Male
  Weight: 49 kg

DRUGS (8)
  1. OLMESARTAN MEDOXOMIL [Suspect]
     Indication: DRUG USE FOR UNKNOWN INDICATION
     Dosage: 20 MG, PER ORAL
     Route: 048
     Dates: end: 20100108
  2. HERBESSER (DILTIAZEM HYDROCHLORIDE) (DILTIAZEM HYDROCHLORIDE) [Concomitant]
  3. SIGMART (NICORANDIL) (NICORANDIL) [Concomitant]
  4. PLAVIX [Concomitant]
  5. LANSOPRAZOLE [Concomitant]
  6. MUCOSTA (REBAMIPIDE) (REBAMIPIDE) [Concomitant]
  7. HARNAL (TAMSULOSIN HYDROCHLORIDE)(TAMSULOSIN HYDROCHLORIDE) [Concomitant]
  8. EBASTEL (EBASTINE)(EBASTINE) [Concomitant]

REACTIONS (5)
  - BLOOD IMMUNOGLOBULIN E INCREASED [None]
  - BLOOD IMMUNOGLOBULIN G INCREASED [None]
  - DRUG HYPERSENSITIVITY [None]
  - EOSINOPHILIA [None]
  - TUBULOINTERSTITIAL NEPHRITIS [None]
